FAERS Safety Report 23780651 (Version 1)
Quarter: 2024Q2

REPORT INFORMATION
  Report Type: Spontaneous
  Country: US (occurrence: US)
  Receive Date: 20240425
  Receipt Date: 20240425
  Transmission Date: 20240716
  Serious: No
  Sender: FDA-Public Use
  Company Number: US-SUN PHARMACEUTICAL INDUSTRIES LTD-2023R1-386190

PATIENT
  Sex: Male

DRUGS (1)
  1. ILUMYA [Suspect]
     Active Substance: TILDRAKIZUMAB-ASMN
     Indication: Psoriasis
     Dosage: UNK FIRST TWO LOADING DOSES WERE GIVEN 4 WEEKS APART, AND AFTER THAT, THEY WERE ADMINISTERED EVERY 1
     Route: 065
     Dates: start: 202001

REACTIONS (1)
  - Hepatic enzyme increased [Unknown]
